FAERS Safety Report 8634012 (Version 2)
Quarter: 2012Q4

REPORT INFORMATION
  Report Type: 
  Country: FR (occurrence: FR)
  Receive Date: 20120626
  Receipt Date: 20121210
  Transmission Date: 20130627
  Serious: Yes (Hospitalization)
  Sender: FDA-Public Use
  Company Number: FR-UCBSA-059920

PATIENT
  Age: 14 Year
  Sex: Female

DRUGS (1)
  1. VIMPAT [Suspect]
     Dosage: 20 TABLETS OF 200 MG
     Route: 048
     Dates: start: 20120610, end: 20120611

REACTIONS (8)
  - Suicide attempt [Unknown]
  - Epilepsy [Recovered/Resolved]
  - Status epilepticus [Recovered/Resolved]
  - Nausea [Recovered/Resolved]
  - Vomiting [Recovered/Resolved]
  - Diplopia [Recovered/Resolved]
  - Headache [Recovered/Resolved]
  - Dizziness [Recovered/Resolved]
